FAERS Safety Report 24327808 (Version 2)
Quarter: 2024Q4

REPORT INFORMATION
  Report Type: Report from Study
  Country: CA (occurrence: CA)
  Receive Date: 20240917
  Receipt Date: 20241002
  Transmission Date: 20250115
  Serious: Yes (Hospitalization)
  Sender: ABBVIE
  Company Number: CA-ABBVIE-5915774

PATIENT
  Age: 73 Year
  Sex: Male

DRUGS (1)
  1. LUPRON DEPOT [Suspect]
     Active Substance: LEUPROLIDE ACETATE
     Indication: Prostate cancer
     Route: 030
     Dates: start: 20230524

REACTIONS (6)
  - Adverse drug reaction [Not Recovered/Not Resolved]
  - Obesity [Unknown]
  - Obstructive sleep apnoea syndrome [Unknown]
  - Mobility decreased [Unknown]
  - Respiratory disorder [Unknown]
  - Hypertension [Unknown]

NARRATIVE: CASE EVENT DATE: 20240903
